FAERS Safety Report 11122287 (Version 1)
Quarter: 2015Q2

REPORT INFORMATION
  Report Type: Report from Study
  Country: CA (occurrence: CA)
  Receive Date: 20150519
  Receipt Date: 20150519
  Transmission Date: 20150821
  Serious: Yes (Other)
  Sender: FDA-Public Use
  Company Number: CA-ABBVIE-15K-028-1385020-00

PATIENT
  Age: 62 Year
  Sex: Female

DRUGS (3)
  1. HUMIRA [Suspect]
     Active Substance: ADALIMUMAB
     Dosage: DOSE VARIED WEEKLY AND BIWEEKLY
     Route: 058
     Dates: end: 201306
  2. HUMIRA [Suspect]
     Active Substance: ADALIMUMAB
     Indication: PSORIASIS
     Route: 058
     Dates: start: 20071029
  3. HUMIRA [Suspect]
     Active Substance: ADALIMUMAB
     Route: 058
     Dates: start: 201407, end: 201503

REACTIONS (6)
  - Nervous system neoplasm [Unknown]
  - Swelling [Unknown]
  - Haemangioma [Unknown]
  - Eyelid ptosis [Unknown]
  - Extranodal marginal zone B-cell lymphoma (MALT type) [Recovered/Resolved]
  - Neoplasm of orbit [Unknown]

NARRATIVE: CASE EVENT DATE: 20150217
